FAERS Safety Report 21958754 (Version 2)
Quarter: 2023Q1

REPORT INFORMATION
  Report Type: Spontaneous
  Country: US (occurrence: US)
  Receive Date: 20230206
  Receipt Date: 20230310
  Transmission Date: 20230418
  Serious: No
  Sender: FDA-Public Use
  Company Number: US-PFIZER INC-202300049931

PATIENT
  Age: 54 Year
  Sex: Female

DRUGS (2)
  1. IBRANCE [Suspect]
     Active Substance: PALBOCICLIB
     Dosage: 21 DAYS FOLLOWED BY 7 DAYS OFF
     Route: 048
     Dates: start: 20221107, end: 20230104
  2. IBRANCE [Suspect]
     Active Substance: PALBOCICLIB
     Dosage: DAILY FOR 21 DAYS, THEN 7 DAYS REST
     Route: 048
     Dates: start: 2023

REACTIONS (3)
  - White blood cell count decreased [Recovered/Resolved]
  - Tumour marker increased [Unknown]
  - Morning sickness [Recovering/Resolving]

NARRATIVE: CASE EVENT DATE: 20230101
